FAERS Safety Report 16569048 (Version 2)
Quarter: 2019Q3

REPORT INFORMATION
  Report Type: Spontaneous
  Country: AU (occurrence: AU)
  Receive Date: 20190713
  Receipt Date: 20190802
  Transmission Date: 20191004
  Serious: Yes (Hospitalization, Other)
  Sender: FDA-Public Use
  Company Number: PHHY2019AU157209

PATIENT
  Age: 31 Year
  Sex: Male

DRUGS (1)
  1. AZITHROMYCIN ANHYDROUS. [Suspect]
     Active Substance: AZITHROMYCIN ANHYDROUS
     Indication: PROPHYLAXIS
     Dosage: 250 MG, QD
     Route: 065

REACTIONS (7)
  - Drug resistance [Unknown]
  - Pyrexia [Unknown]
  - Paratyphoid fever [Unknown]
  - Diarrhoea [Unknown]
  - Fatigue [Unknown]
  - Product use in unapproved indication [Unknown]
  - Abdominal pain [Unknown]
